FAERS Safety Report 21944853 (Version 1)
Quarter: 2023Q1

REPORT INFORMATION
  Report Type: Spontaneous
  Country: DE (occurrence: DE)
  Receive Date: 20230202
  Receipt Date: 20230202
  Transmission Date: 20230418
  Serious: Yes (Hospitalization)
  Sender: FDA-Public Use
  Company Number: None

PATIENT
  Age: 44 Year
  Sex: Female

DRUGS (7)
  1. METOPROLOL [Suspect]
     Active Substance: METOPROLOL
     Indication: Product used for unknown indication
     Dosage: 47.5 MILLIGRAM, QD (FOR A LONG TIME - UNTIL FURT)
     Route: 048
  2. CITALOPRAM [Suspect]
     Active Substance: CITALOPRAM HYDROBROMIDE
     Indication: Product used for unknown indication
     Dosage: 30 MILLIGRAM, QD (UNTIL FURTHER NOTICE)
     Route: 048
     Dates: start: 20220415
  3. LITHIUM CARBONATE [Suspect]
     Active Substance: LITHIUM CARBONATE
     Indication: Product used for unknown indication
     Dosage: 225 MILLIGRAM, QD START DATE: 25-MAY-2022
     Route: 048
     Dates: end: 20220604
  4. PANTOPRAZOLE SODIUM [Concomitant]
     Active Substance: PANTOPRAZOLE SODIUM
     Dosage: 40 MILLIGRAM, QD (FOR A LONG TIME - UNTIL FURTHER)
     Route: 048
  5. XARELTO [Concomitant]
     Active Substance: RIVAROXABAN
     Dosage: 20 MILLIGRAM, QD (FOR A LONG TIME - UNTIL FURTHER)
     Route: 048
  6. RANEXA [Concomitant]
     Active Substance: RANOLAZINE
     Dosage: 750 MILLIGRAM, QD (FOR A LONG TIME - UNTIL FURTH)
     Route: 048
  7. ATORVASTATIN [Concomitant]
     Active Substance: ATORVASTATIN
     Dosage: 40 MILLIGRAM, QD (FOR A LONG TIME - UNTIL FURTH)
     Route: 048

REACTIONS (2)
  - Sinus bradycardia [Not Recovered/Not Resolved]
  - Performance status decreased [Not Recovered/Not Resolved]

NARRATIVE: CASE EVENT DATE: 20220501
